FAERS Safety Report 25431680 (Version 1)
Quarter: 2025Q2

REPORT INFORMATION
  Report Type: Other
  Country: BF (occurrence: BF)
  Receive Date: 20250613
  Receipt Date: 20250613
  Transmission Date: 20250716
  Serious: Yes (Hospitalization, Other)
  Sender: ANI
  Company Number: BF-ANIPHARMA-023141

PATIENT
  Age: 75 Year
  Sex: Female

DRUGS (3)
  1. PROMETHAZINE [Suspect]
     Active Substance: PROMETHAZINE HYDROCHLORIDE
     Indication: Depression
  2. HALOPERIDOL [Concomitant]
     Active Substance: HALOPERIDOL
     Indication: Depression
  3. AMLODIPINE\PERINDOPRIL [Concomitant]
     Active Substance: AMLODIPINE\PERINDOPRIL
     Indication: Product used for unknown indication

REACTIONS (4)
  - Neuroleptic malignant syndrome [Recovered/Resolved]
  - Hyperthyroidism [Recovered/Resolved]
  - Thyrotoxic cardiomyopathy [Recovered/Resolved]
  - Symptom masked [Unknown]
